FAERS Safety Report 6523626-8 (Version None)
Quarter: 2009Q4

REPORT INFORMATION
  Report Type: 
  Country: None (occurrence: None)
  Receive Date: 20091231
  Receipt Date: 20091225
  Transmission Date: 20100525
  Serious: Yes (Death, Hospitalization, Other)
  Sender: FDA-Public Use
  Company Number: PHBS2006JP04135

PATIENT
  Sex: Female
  Weight: 47 kg

DRUGS (8)
  1. AREDIA [Suspect]
     Indication: METASTASES TO BONE
     Dosage: 90 MG, QMO
     Dates: start: 20031001
  2. AREDIA [Suspect]
     Dosage: 90 MG, EVERY 4 WEEKS
     Route: 042
     Dates: start: 20050204, end: 20060123
  3. BISPHONAL [Suspect]
     Indication: METASTASES TO BONE
     Dosage: 10 MG, EVERY 4 WEEKS
     Route: 042
     Dates: start: 20031024, end: 20050121
  4. CEFAZOLIN [Concomitant]
     Dosage: 2G/DAY
     Dates: start: 20060215, end: 20060216
  5. CARBENIN [Concomitant]
     Dosage: 1G/DAY
     Dates: start: 20060217
  6. AMPICILLIN [Concomitant]
     Dosage: 500 MG, QD
     Dates: start: 20060223, end: 20060425
  7. AMPICILLIN [Concomitant]
     Dosage: 250 MG, QD
     Dates: start: 20060301
  8. POVIDONE IODINE [Concomitant]
     Dosage: EVERY MORNING

REACTIONS (18)
  - ACTINOMYCOSIS [None]
  - BONE DISORDER [None]
  - C-REACTIVE PROTEIN INCREASED [None]
  - DENTOFACIAL FUNCTIONAL DISORDER [None]
  - DENTURE WEARER [None]
  - ERYTHEMA [None]
  - EXCESSIVE GRANULATION TISSUE [None]
  - FISTULA [None]
  - HYPOAESTHESIA ORAL [None]
  - INDURATION [None]
  - MALIGNANT NEOPLASM PROGRESSION [None]
  - ORAL PRURITUS [None]
  - OSTEONECROSIS [None]
  - PAIN IN JAW [None]
  - SWELLING [None]
  - TENDERNESS [None]
  - TOOTH EXTRACTION [None]
  - WHITE BLOOD CELL COUNT INCREASED [None]
